FAERS Safety Report 13954455 (Version 1)
Quarter: 2017Q3

REPORT INFORMATION
  Report Type: Spontaneous
  Country: CN (occurrence: CN)
  Receive Date: 20170911
  Receipt Date: 20170911
  Transmission Date: 20171128
  Serious: Yes (Hospitalization, Other)
  Sender: FDA-Public Use
  Company Number: CN-ELI_LILLY_AND_COMPANY-CN201708012698

PATIENT
  Age: 50 Year
  Sex: Male
  Weight: 50 kg

DRUGS (5)
  1. HUMULIN 70/30 [Suspect]
     Active Substance: INSULIN HUMAN
     Dosage: 28 U, BID
     Route: 058
     Dates: start: 20170531, end: 20170602
  2. HUMULIN 70/30 [Suspect]
     Active Substance: INSULIN HUMAN
     Dosage: 28 U, DAILY BEFORE BREAKFAST
     Route: 058
     Dates: start: 20170603
  3. HUMULIN 70/30 [Suspect]
     Active Substance: INSULIN HUMAN
     Dosage: 24 U, DAILY BEFORE DINNER
     Route: 058
     Dates: start: 20170603
  4. HUMULIN 70/30 [Suspect]
     Active Substance: INSULIN HUMAN
     Indication: TYPE 2 DIABETES MELLITUS
     Dosage: UNK UNK, UNKNOWN
     Route: 058
     Dates: start: 2011
  5. HUMULIN 70/30 [Suspect]
     Active Substance: INSULIN HUMAN
     Dosage: 28 U, BID
     Route: 058
     Dates: start: 20170503

REACTIONS (6)
  - Hypoglycaemia [Recovering/Resolving]
  - Oedema [Recovering/Resolving]
  - Thirst [Recovering/Resolving]
  - Polydipsia [Recovering/Resolving]
  - Decreased appetite [Recovering/Resolving]
  - Diarrhoea [Recovering/Resolving]

NARRATIVE: CASE EVENT DATE: 20170602
